FAERS Safety Report 7035311-7 (Version None)
Quarter: 2010Q4

REPORT INFORMATION
  Report Type: 
  Country: None (occurrence: None)
  Receive Date: 20101008
  Receipt Date: 20100930
  Transmission Date: 20110411
  Serious: Yes (Other)
  Sender: FDA-Public Use
  Company Number: B0677090A

PATIENT
  Age: 56 Year
  Sex: Female
  Weight: 83 kg

DRUGS (3)
  1. AVAMYS [Suspect]
     Dosage: 55MCG PER DAY
     Route: 045
     Dates: start: 20100917, end: 20100920
  2. CETIRIZINE HCL [Concomitant]
     Route: 048
     Dates: start: 20100722
  3. VENTOLIN [Concomitant]
     Indication: WHEEZING
     Route: 055
     Dates: start: 20100813

REACTIONS (3)
  - HYPOAESTHESIA [None]
  - PARAESTHESIA [None]
  - PARAESTHESIA ORAL [None]
